FAERS Safety Report 5163543-1 (Version None)
Quarter: 2006Q4

REPORT INFORMATION
  Report Type: 
  Country: None (occurrence: None)
  Receive Date: 20061124
  Receipt Date: 20061113
  Transmission Date: 20070319
  Serious: Yes (Life-Threatening, Other)
  Sender: FDA-Public Use
  Company Number: 2006141225

PATIENT
  Sex: Male
  Weight: 117.9352 kg

DRUGS (4)
  1. CAVERJECT [Suspect]
     Dosage: PARENTERAL
     Route: 051
  2. LORAZEPAM [Concomitant]
  3. ALL OTHER THERAPEUTIC PRODUCTS [Concomitant]
  4. COCAINE [Concomitant]

REACTIONS (6)
  - COAGULOPATHY [None]
  - ERECTION INCREASED [None]
  - GENITAL DISORDER MALE [None]
  - INCORRECT DOSE ADMINISTERED [None]
  - SCROTAL DISORDER [None]
  - VEIN DISORDER [None]
